FAERS Safety Report 9287230 (Version 1)
Quarter: 2013Q2

REPORT INFORMATION
  Report Type: Spontaneous
  Country: US (occurrence: US)
  Receive Date: 20130513
  Receipt Date: 20130513
  Transmission Date: 20140414
  Serious: Yes (Hospitalization)
  Sender: FDA-Public Use
  Company Number: US-B.I. PHARMACEUTICALS,INC./RIDGEFIELD-2013-BI-12653BP

PATIENT
  Age: 66 Year
  Sex: Male

DRUGS (6)
  1. PRADAXA [Suspect]
     Indication: ATRIAL FIBRILLATION
     Dosage: 300 MG
     Route: 048
     Dates: start: 201010, end: 20130502
  2. COREG [Concomitant]
     Indication: CARDIAC FAILURE CONGESTIVE
  3. XANAX [Concomitant]
     Indication: STRESS
  4. AMBIEN [Concomitant]
     Indication: INSOMNIA
  5. TIKOSYN [Concomitant]
     Indication: CARDIAC FAILURE CONGESTIVE
  6. LASIX [Concomitant]
     Indication: CARDIAC FAILURE CONGESTIVE

REACTIONS (7)
  - Haemorrhage intracranial [Not Recovered/Not Resolved]
  - Fall [Recovered/Resolved]
  - Head injury [Recovered/Resolved]
  - Dizziness [Not Recovered/Not Resolved]
  - Weight decreased [Not Recovered/Not Resolved]
  - Headache [Unknown]
  - Malaise [Unknown]
